FAERS Safety Report 22400805 (Version 1)
Quarter: 2023Q2

REPORT INFORMATION
  Report Type: Spontaneous
  Country: US (occurrence: US)
  Receive Date: 20230602
  Receipt Date: 20230602
  Transmission Date: 20230722
  Serious: No
  Sender: FDA-Public Use
  Company Number: US-PFIZER INC-PV202300027840

PATIENT
  Age: 77 Year
  Sex: Female
  Weight: 61.23 kg

DRUGS (2)
  1. IBRANCE [Suspect]
     Active Substance: PALBOCICLIB
     Indication: Ovarian cancer
     Dosage: 100 MG, 1X/DAY
     Route: 048
  2. IBRANCE [Suspect]
     Active Substance: PALBOCICLIB
     Dosage: 75 MG 3X7 UD(AS DIRECTED) TAB 21

REACTIONS (4)
  - White blood cell count decreased [Unknown]
  - Carbohydrate antigen 125 increased [Unknown]
  - Off label use [Unknown]
  - Off label use [Unknown]
